FAERS Safety Report 24401046 (Version 1)
Quarter: 2024Q4

REPORT INFORMATION
  Report Type: Report from Study
  Country: US (occurrence: US)
  Receive Date: 20241006
  Receipt Date: 20241006
  Transmission Date: 20250115
  Serious: Yes (Other)
  Sender: ABBVIE
  Company Number: US-ABBVIE-5864629

PATIENT
  Sex: Female
  Weight: 103 kg

DRUGS (15)
  1. HUMIRA [Suspect]
     Active Substance: ADALIMUMAB
     Indication: Rheumatoid arthritis
     Dosage: FORM STRENGTH:  40 MG
     Route: 058
     Dates: start: 2012, end: 202405
  2. HUMIRA [Suspect]
     Active Substance: ADALIMUMAB
     Route: 058
     Dates: start: 202406
  3. WIXELA INHUB [Concomitant]
     Active Substance: FLUTICASONE PROPIONATE\SALMETEROL XINAFOATE
     Indication: Drug hypersensitivity
  4. ASPIRIN [Concomitant]
     Active Substance: ASPIRIN
     Indication: Product used for unknown indication
  5. SPIRONOLACTONE [Concomitant]
     Active Substance: SPIRONOLACTONE
     Indication: Hypertension
  6. ATORVASTATIN [Concomitant]
     Active Substance: ATORVASTATIN
     Indication: Blood cholesterol increased
  7. AMLODIPINE [Concomitant]
     Active Substance: AMLODIPINE BESYLATE
     Indication: Hypertension
  8. RESTASIS [Concomitant]
     Active Substance: CYCLOSPORINE
     Indication: Dry eye
  9. ALBUTEROL [Concomitant]
     Active Substance: ALBUTEROL
     Indication: Dyspnoea
  10. LASIX [Concomitant]
     Active Substance: FUROSEMIDE
     Indication: Fluid retention
  11. OZEMPIC [Concomitant]
     Active Substance: SEMAGLUTIDE
     Indication: Glucose tolerance impaired
  12. OLMESARTAN [Concomitant]
     Active Substance: OLMESARTAN
     Indication: Hypertension
  13. NEURONTIN [Concomitant]
     Active Substance: GABAPENTIN
     Indication: Nerve injury
  14. MECLIZINE [Concomitant]
     Active Substance: MECLIZINE HYDROCHLORIDE
     Indication: Dizziness
  15. VENLAFAXINE [Concomitant]
     Active Substance: VENLAFAXINE HYDROCHLORIDE
     Indication: Depression

REACTIONS (3)
  - Osteoarthritis [Recovered/Resolved]
  - Cataract [Recovered/Resolved]
  - Osteoarthritis [Recovered/Resolved]

NARRATIVE: CASE EVENT DATE: 20220101
